FAERS Safety Report 21441504 (Version 1)
Quarter: 2022Q4

REPORT INFORMATION
  Report Type: Spontaneous
  Country: FR (occurrence: FR)
  Receive Date: 20221011
  Receipt Date: 20221011
  Transmission Date: 20230113
  Serious: Yes (Hospitalization, Other)
  Sender: FDA-Public Use
  Company Number: None

PATIENT

DRUGS (2)
  1. DICLOFENAC [Suspect]
     Active Substance: DICLOFENAC
     Indication: Product used for unknown indication
     Dosage: 1 DF, QD
     Route: 003
     Dates: start: 20220811, end: 20220818
  2. HERBALS\METHYL SALICYLATE [Suspect]
     Active Substance: HERBALS\METHYL SALICYLATE
     Indication: Product used for unknown indication
     Dosage: 1 DF, QD
     Route: 003
     Dates: start: 20220811, end: 20220818

REACTIONS (1)
  - Cutaneous vasculitis [Recovering/Resolving]

NARRATIVE: CASE EVENT DATE: 20220814
